FAERS Safety Report 4539006-0 (Version None)
Quarter: 2004Q4

REPORT INFORMATION
  Report Type: 
  Country: None (occurrence: None)
  Receive Date: 20041222
  Receipt Date: 20041206
  Transmission Date: 20050328
  Serious: Yes (Other)
  Sender: FDA-Public Use
  Company Number: USA041080154

PATIENT
  Age: 87 Year
  Sex: Female

DRUGS (3)
  1. FORTEO [Suspect]
     Indication: OSTEOPOROSIS
     Dates: start: 20040616
  2. CORAL CALCIUM [Concomitant]
  3. MULTIVITAMIN [Concomitant]

REACTIONS (3)
  - EMOTIONAL DISTRESS [None]
  - FALL [None]
  - FEMUR FRACTURE [None]
